FAERS Safety Report 6192573-6 (Version None)
Quarter: 2009Q2

REPORT INFORMATION
  Report Type: 
  Country: None (occurrence: None)
  Receive Date: 20090514
  Receipt Date: 20090514
  Transmission Date: 20091009
  Serious: No
  Sender: FDA-Public Use
  Company Number: None

PATIENT
  Age: 47 Month
  Sex: Female
  Weight: 16 kg

DRUGS (1)
  1. CODEINE SUL TAB [Suspect]
     Indication: ADENOTONSILLECTOMY
     Dosage: 10MG Q6 H PRN PO
     Route: 048
     Dates: start: 20090511

REACTIONS (2)
  - ANGIOEDEMA [None]
  - PHARYNGEAL OEDEMA [None]
